FAERS Safety Report 4302318-X (Version None)
Quarter: 2004Q1

REPORT INFORMATION
  Report Type: 
  Country: None (occurrence: None)
  Receive Date: 20040223
  Receipt Date: 20030130
  Transmission Date: 20041129
  Serious: Yes (Hospitalization, Disabling)
  Sender: FDA-Public Use
  Company Number: WAES 0301USA03170

PATIENT
  Age: 47 Year
  Sex: Male
  Weight: 88 kg

DRUGS (1)
  1. VIOXX [Suspect]
     Route: 048

REACTIONS (15)
  - CHEST PAIN [None]
  - CHRONIC FATIGUE SYNDROME [None]
  - DEEP VEIN THROMBOSIS [None]
  - DYSPEPSIA [None]
  - GASTRIC DISORDER [None]
  - GOUT [None]
  - HAEMATOCHEZIA [None]
  - HAEMORRHAGE [None]
  - HEPATITIS [None]
  - HYPERTENSION [None]
  - RENAL DISORDER [None]
  - RIB FRACTURE [None]
  - SPINAL OSTEOARTHRITIS [None]
  - STOMACH DISCOMFORT [None]
  - THROMBOSIS [None]
